FAERS Safety Report 23550961 (Version 1)
Quarter: 2024Q1

REPORT INFORMATION
  Report Type: Report from Study
  Country: US (occurrence: US)
  Receive Date: 20240221
  Receipt Date: 20240221
  Transmission Date: 20240409
  Serious: Yes (Disabling, Other)
  Sender: FDA-Public Use
  Company Number: US-ABBVIE-5428656

PATIENT
  Age: 85 Year
  Sex: Female
  Weight: 69 kg

DRUGS (2)
  1. RINVOQ [Suspect]
     Active Substance: UPADACITINIB
     Indication: Rheumatoid arthritis
     Route: 048
     Dates: start: 20211103
  2. RINVOQ [Suspect]
     Active Substance: UPADACITINIB
     Indication: Rheumatoid arthritis
     Route: 048
     Dates: start: 20210726

REACTIONS (32)
  - Paralysis [Unknown]
  - Feeling jittery [Unknown]
  - Cerebrovascular accident [Unknown]
  - Pollakiuria [Unknown]
  - Pruritus [Unknown]
  - Malaise [Unknown]
  - Chronic obstructive pulmonary disease [Recovering/Resolving]
  - Ischaemia [Unknown]
  - Hypertension [Unknown]
  - Excessive eye blinking [Unknown]
  - Visual impairment [Unknown]
  - Tachycardia [Unknown]
  - Gait disturbance [Unknown]
  - Skin warm [Unknown]
  - Pallor [Unknown]
  - Dry gangrene [Unknown]
  - Erythema [Unknown]
  - Pulse absent [Unknown]
  - Arthralgia [Unknown]
  - Haemoptysis [Unknown]
  - Syncope [Unknown]
  - Intermittent claudication [Unknown]
  - Pain [Unknown]
  - Hypotension [Unknown]
  - Unevaluable event [Unknown]
  - Pleuritic pain [Unknown]
  - Hand deformity [Unknown]
  - Paraesthesia [Unknown]
  - Gangrene [Unknown]
  - Pain [Unknown]
  - Memory impairment [Unknown]
  - Peripheral swelling [Unknown]

NARRATIVE: CASE EVENT DATE: 20230901
